FAERS Safety Report 19804343 (Version 1)
Quarter: 2021Q3

REPORT INFORMATION
  Report Type: Spontaneous
  Country: US (occurrence: US)
  Receive Date: 20210908
  Receipt Date: 20210908
  Transmission Date: 20211014
  Serious: No
  Sender: FDA-Public Use
  Company Number: US-FARMAPROD-202105-0760

PATIENT
  Age: 85 Year
  Sex: Female

DRUGS (7)
  1. OXERVATE [Suspect]
     Active Substance: CENEGERMIN-BKBJ
     Indication: NEUROTROPHIC KERATOPATHY
     Route: 047
     Dates: start: 20210427
  2. OXERVATE [Suspect]
     Active Substance: CENEGERMIN-BKBJ
     Indication: OPEN ANGLE GLAUCOMA
  3. LEVOTHYROXINE. [Concomitant]
     Active Substance: LEVOTHYROXINE
  4. FLUOROMETHOLONE. [Concomitant]
     Active Substance: FLUOROMETHOLONE
     Dosage: DROPS SUSPENSION
  5. BRIMONIDINE/DORZOLAMIDE [Concomitant]
  6. OXERVATE [Suspect]
     Active Substance: CENEGERMIN-BKBJ
     Indication: CATARACT NUCLEAR
  7. METFORMIN [Concomitant]
     Active Substance: METFORMIN HYDROCHLORIDE
     Dosage: EXTENDED RELEASE GASTRIC

REACTIONS (3)
  - Ocular hyperaemia [Unknown]
  - Eye pain [Unknown]
  - Product dose omission issue [Unknown]

NARRATIVE: CASE EVENT DATE: 20210513
